FAERS Safety Report 22206371 (Version 1)
Quarter: 2023Q2

REPORT INFORMATION
  Report Type: Spontaneous
  Country: US (occurrence: US)
  Receive Date: 20230413
  Receipt Date: 20230413
  Transmission Date: 20230721
  Serious: Yes (Other)
  Sender: FDA-Public Use
  Company Number: US-JNJFOC-20190817458

PATIENT
  Age: 41 Year
  Sex: Female
  Weight: 81.720 kg

DRUGS (1)
  1. IMODIUM MULTI-SYMPTOM RELIEF [Suspect]
     Active Substance: DIMETHICONE\LOPERAMIDE HYDROCHLORIDE
     Indication: Diarrhoea
     Dosage: PRODUCT USE FREQUENCY: ONCE?PRODUCT DOSE OR QUANTITY: ONE
     Route: 065

REACTIONS (3)
  - Choking [Recovered/Resolved]
  - Product physical issue [Unknown]
  - Drug ineffective [Unknown]
